FAERS Safety Report 8014914-7 (Version None)
Quarter: 2011Q4

REPORT INFORMATION
  Report Type: 
  Country: None (occurrence: None)
  Receive Date: 20111229
  Receipt Date: 20111220
  Transmission Date: 20120403
  Serious: Yes (Hospitalization, Other)
  Sender: FDA-Public Use
  Company Number: IT-B.I. PHARMACEUTICALS,INC./RIDGEFIELD-2011-IT-00320IT

PATIENT
  Sex: Female

DRUGS (5)
  1. PRAMIPEXOLE DIHYDROCHLORIDE [Suspect]
     Dosage: 2 POSOLOGIC UNITS DAILY
     Route: 048
     Dates: start: 20101019, end: 20111018
  2. ENTUMIN [Suspect]
     Dosage: STRENGTH:100MG/ML; DOSAGE: 15 DROPS DAILY
     Route: 048
     Dates: start: 20101019, end: 20111018
  3. PAROXETINE [Suspect]
     Dosage: STRENGTH: 10MG/ML; DOSAGE: 10 DROPS DAILY
     Route: 048
     Dates: start: 20101019, end: 20111018
  4. STALEVO 100 [Suspect]
     Dosage: STRENGTH: 100MG/25MG/200MG; DAILY DOSE: 4 POSOLOGIC UNITS
     Route: 048
     Dates: start: 20101019, end: 20111018
  5. DURAGESIC-100 [Suspect]
     Dosage: STRENGTH: 50MCG/H
     Route: 062
     Dates: start: 20101019, end: 20111118

REACTIONS (2)
  - DYSKINESIA [None]
  - SOPOR [None]
